FAERS Safety Report 7157699-9 (Version None)
Quarter: 2010Q4

REPORT INFORMATION
  Report Type: 
  Country: None (occurrence: None)
  Receive Date: 20101214
  Receipt Date: 20100317
  Transmission Date: 20110411
  Serious: No
  Sender: FDA-Public Use
  Company Number: US-ASTRAZENECA-2010SE11711

PATIENT
  Age: 76 Year
  Sex: Male
  Weight: 77.1 kg

DRUGS (5)
  1. CRESTOR [Suspect]
     Indication: BLOOD CHOLESTEROL INCREASED
     Route: 048
     Dates: start: 20090301
  2. TOPROL-XL [Concomitant]
     Indication: HYPERTENSION
  3. BETA BLOCKER [Concomitant]
     Indication: CARDIAC DISORDER
  4. FLOMAX [Concomitant]
     Indication: PROSTATIC DISORDER
  5. ASPIRIN [Concomitant]

REACTIONS (1)
  - VITAMIN D DECREASED [None]
